FAERS Safety Report 7060841-1 (Version None)
Quarter: 2010Q4

REPORT INFORMATION
  Report Type: 
  Country: None (occurrence: None)
  Receive Date: 20101025
  Receipt Date: 20101015
  Transmission Date: 20110411
  Serious: Yes (Hospitalization, Other)
  Sender: FDA-Public Use
  Company Number: US-PERRIGO-10US013993

PATIENT
  Sex: Female

DRUGS (2)
  1. TUSSIN DM LIQ 359 [Suspect]
     Dosage: 2 BOTTLES, ONCE
     Route: 048
     Dates: start: 20101014, end: 20101014
  2. TUSSIN DM LIQ 359 [Suspect]
     Dosage: UNK
     Route: 048

REACTIONS (3)
  - DEPENDENCE [None]
  - DRUG ABUSE [None]
  - OVERDOSE [None]
